FAERS Safety Report 17459492 (Version 1)
Quarter: 2020Q1

REPORT INFORMATION
  Report Type: Spontaneous
  Country: US (occurrence: US)
  Receive Date: 20200226
  Receipt Date: 20200226
  Transmission Date: 20200409
  Serious: Yes (Other)
  Sender: FDA-Public Use
  Company Number: US-MYLANLABS-2020M1020330

PATIENT
  Age: 63 Year
  Sex: Male
  Weight: 122 kg

DRUGS (4)
  1. VITAMIN D                          /00107901/ [Concomitant]
     Active Substance: ERGOCALCIFEROL
     Dosage: UNK
  2. IMODIUM [Concomitant]
     Active Substance: LOPERAMIDE HYDROCHLORIDE
     Dosage: UNK
  3. GAS-X [Concomitant]
     Active Substance: DIMETHICONE
     Dosage: UNK
  4. MESALAMINE EXTENDED-RELEASE CAPSULES USP [Suspect]
     Active Substance: MESALAMINE
     Indication: IRRITABLE BOWEL SYNDROME
     Dosage: UNK
     Route: 048
     Dates: start: 20200121

REACTIONS (6)
  - Product substitution issue [Unknown]
  - Condition aggravated [Recovered/Resolved]
  - Off label use [Recovered/Resolved]
  - Rectal haemorrhage [Recovered/Resolved]
  - Gastrointestinal sounds abnormal [Recovered/Resolved]
  - Drug ineffective [Recovered/Resolved]

NARRATIVE: CASE EVENT DATE: 20200201
